FAERS Safety Report 15111078 (Version 2)
Quarter: 2018Q3

REPORT INFORMATION
  Report Type: Spontaneous
  Country: US (occurrence: US)
  Receive Date: 20180705
  Receipt Date: 20180802
  Transmission Date: 20181010
  Serious: Yes (Hospitalization, Other)
  Sender: FDA-Public Use
  Company Number: US-JNJFOC-20180703203

PATIENT
  Age: 84 Year
  Sex: Female

DRUGS (2)
  1. IMBRUVICA [Suspect]
     Active Substance: IBRUTINIB
     Indication: CHRONIC LYMPHOCYTIC LEUKAEMIA
     Route: 048
     Dates: end: 20180505
  2. IMBRUVICA [Suspect]
     Active Substance: IBRUTINIB
     Indication: CHRONIC LYMPHOCYTIC LEUKAEMIA
     Route: 048
     Dates: start: 2016

REACTIONS (10)
  - Escherichia bacteraemia [Recovered/Resolved]
  - Renal failure [Recovering/Resolving]
  - Gastrooesophageal reflux disease [Unknown]
  - Asthenia [Recovering/Resolving]
  - Anaemia [Unknown]
  - Arthritis bacterial [Recovered/Resolved]
  - Occult blood positive [Unknown]
  - Pyoderma gangrenosum [Recovering/Resolving]
  - Hypogammaglobulinaemia [Unknown]
  - Urinary retention [Recovering/Resolving]

NARRATIVE: CASE EVENT DATE: 201806
